FAERS Safety Report 16694544 (Version 1)
Quarter: 2019Q3

REPORT INFORMATION
  Report Type: Report from Study
  Country: US (occurrence: US)
  Receive Date: 20190812
  Receipt Date: 20190812
  Transmission Date: 20191004
  Serious: Yes (Hospitalization, Other)
  Sender: FDA-Public Use
  Company Number: US-PFIZER INC-2019337400

PATIENT
  Age: 18 Month
  Sex: Male
  Weight: 11 kg

DRUGS (5)
  1. CYCLOPHOSPHAMIDE. [Suspect]
     Active Substance: CYCLOPHOSPHAMIDE
     Indication: ALVEOLAR RHABDOMYOSARCOMA
     Dosage: UNK UNK, CYCLIC (TOTAL DOSE ADMINISTERED THIS COURSE: 600 MG)
     Dates: start: 20190513, end: 20190527
  2. VINCRISTINE SULFATE. [Suspect]
     Active Substance: VINCRISTINE SULFATE
     Indication: ALVEOLAR RHABDOMYOSARCOMA
     Dosage: UNK UNK, CYCLIC (TOTAL DOSE ADMINISTERED THIS COURSE: 2.22 MG)
     Dates: start: 20190513, end: 20190527
  3. TEMSIROLIMUS. [Suspect]
     Active Substance: TEMSIROLIMUS
     Indication: ALVEOLAR RHABDOMYOSARCOMA
     Dosage: UNK UNK, CYCLIC (TOTAL DOSE ADMINISTERED THIS COURSE: 22.5 MG)
     Dates: start: 20190513, end: 20190527
  4. DACTINOMYCIN [Suspect]
     Active Substance: DACTINOMYCIN
     Indication: ALVEOLAR RHABDOMYOSARCOMA
     Dosage: UNK UNK, CYCLIC (TOTAL DOSE ADMINISTERED THIS COURSE: 0.4 MG)
     Dates: start: 20190513, end: 20190527
  5. CAMPTOSAR [Suspect]
     Active Substance: IRINOTECAN HYDROCHLORIDE
     Indication: ALVEOLAR RHABDOMYOSARCOMA
     Dosage: UNK UNK, CYCLIC (TOTAL DOSE ADMINISTERED THIS COURSE: 0 MG)

REACTIONS (2)
  - Hypertriglyceridaemia [Recovered/Resolved]
  - Dehydration [Recovered/Resolved]

NARRATIVE: CASE EVENT DATE: 20190522
